FAERS Safety Report 6615219-9 (Version None)
Quarter: 2010Q1

REPORT INFORMATION
  Report Type: 
  Country: None (occurrence: None)
  Receive Date: 20100305
  Receipt Date: 20100224
  Transmission Date: 20100710
  Serious: Yes (Life-Threatening, Hospitalization)
  Sender: FDA-Public Use
  Company Number: FR-NOVOPROD-304082

PATIENT
  Age: 88 Year
  Sex: Female

DRUGS (13)
  1. NOVONORM [Suspect]
     Indication: TYPE 2 DIABETES MELLITUS
     Dosage: UK/PO
     Route: 048
     Dates: end: 20091231
  2. VITAMIN K ANTAGONISTS [Concomitant]
  3. LASIX [Concomitant]
  4. LOXEN [Concomitant]
  5. NITROGLYCERIN [Concomitant]
  6. CORDARONE [Concomitant]
  7. NEO-MERCAZOLE TAB [Concomitant]
  8. COZAAR [Concomitant]
     Indication: HYPERTENSION
     Dosage: 50 MG, QD
     Route: 048
     Dates: end: 20091231
  9. SINTROM [Concomitant]
     Indication: ARRHYTHMIA
     Dosage: UNK
     Dates: end: 20091231
  10. DIFFU K [Concomitant]
     Indication: HYPOKALAEMIA
     Dosage: 600 MG, QD
     Route: 048
     Dates: end: 20091231
  11. URBANYL [Concomitant]
     Indication: ANXIETY
     Dosage: 0.5 OF PHARMACEUTICAL DOSE DAILY
     Route: 048
     Dates: end: 20091231
  12. MONURIL [Concomitant]
     Indication: CYSTITIS
     Dosage: 1 PHARMACEUTICAL DOSE PER WEEK
     Dates: start: 20091212, end: 20091231
  13. CALCIUM D3                         /00944201/ [Concomitant]
     Indication: CALCIUM DEFICIENCY
     Dosage: 1 PHARMACEUTICAL DOSE PER WEEK
     Route: 048
     Dates: end: 20091231

REACTIONS (6)
  - ABDOMINAL WALL HAEMATOMA [None]
  - CARDIAC FAILURE [None]
  - HAEMORRHAGIC STROKE [None]
  - NUTRITIONAL CONDITION ABNORMAL [None]
  - RENAL FAILURE ACUTE [None]
  - URINARY TRACT INFECTION [None]
